FAERS Safety Report 14502799 (Version 2)
Quarter: 2019Q3

REPORT INFORMATION
  Report Type: Spontaneous
  Country: FR (occurrence: FR)
  Receive Date: 20180208
  Receipt Date: 20190920
  Transmission Date: 20191004
  Serious: Yes (Death, Hospitalization)
  Sender: FDA-Public Use
  Company Number: FR-ROCHE-2065593

PATIENT
  Age: 49 Year
  Sex: Female

DRUGS (5)
  1. PHOSPHONEUROS [Suspect]
     Active Substance: CALCIUM PHOSPHATE, DIBASIC, ANHYDROUS\MAGNESIUM GLYCEROPHOSPHATE\PHOSPHORIC ACID\SODIUM PHOSPHATE, DIBASIC
     Indication: TRACE ELEMENT DEFICIENCY
     Dosage: UNIT DOSE: 150 [DRP], MOST RECENT DOSE ADMINISTERED ON 11/DEC/2017
     Route: 048
     Dates: start: 20171206
  2. FLAGYL [Suspect]
     Active Substance: METRONIDAZOLE\METRONIDAZOLE HYDROCHLORIDE
     Indication: CHOLECYSTITIS
     Dosage: MOST RECENT DOSE ADMINISTERED ON 15/DEC/2017
     Route: 042
     Dates: start: 20171205
  3. XELODA [Suspect]
     Active Substance: CAPECITABINE
     Indication: BREAST CANCER
     Dosage: MOST RECENT DOSE ADMINISTERED IN DEC/2017
     Route: 048
     Dates: start: 201708
  4. AUGMENTIN [Suspect]
     Active Substance: AMOXICILLIN\CLAVULANATE POTASSIUM
     Indication: CHOLECYSTITIS
     Dosage: MOST RECENT DOSE ADMINISTERED ON 21/DEC/2017
     Route: 048
     Dates: start: 20171207
  5. ROCEPHINE [Suspect]
     Active Substance: CEFTRIAXONE SODIUM
     Indication: CHOLECYSTITIS
     Dosage: MOST RECENT DOSE ADMINISTERED ON 07/DEC/2017
     Route: 042
     Dates: start: 20171204

REACTIONS (1)
  - Cholestasis [Not Recovered/Not Resolved]

NARRATIVE: CASE EVENT DATE: 20171214
